FAERS Safety Report 12979113 (Version 1)
Quarter: 2016Q4

REPORT INFORMATION
  Report Type: Spontaneous
  Country: US (occurrence: US)
  Receive Date: 20161115
  Receipt Date: 20161115
  Transmission Date: 20170207
  Serious: No
  Sender: FDA-Public Use
  Company Number: None

PATIENT
  Age: 6 Month
  Sex: Female

DRUGS (1)
  1. ASPIRIN CHEWABLE [Suspect]
     Active Substance: ASPIRIN
     Route: 048

REACTIONS (2)
  - Device computer issue [None]
  - Transcription medication error [None]
